FAERS Safety Report 21411430 (Version 1)
Quarter: 2022Q4

REPORT INFORMATION
  Report Type: Spontaneous
  Country: US (occurrence: None)
  Receive Date: 20221005
  Receipt Date: 20221005
  Transmission Date: 20230112
  Serious: Yes (Other)
  Sender: FDA-Public Use
  Company Number: None

PATIENT
  Age: 48 Year
  Sex: 0
  Weight: 77 kg

DRUGS (11)
  1. EVUSHELD [Suspect]
     Active Substance: CILGAVIMAB\TIXAGEVIMAB
     Indication: COVID-19 prophylaxis
     Dosage: OTHER FREQUENCY : EVERY 6  MONTHS;?
     Route: 030
     Dates: start: 20220825, end: 20220825
  2. ALBUTEROL [Concomitant]
     Active Substance: ALBUTEROL
  3. ASCORBIC ACID [Concomitant]
     Active Substance: ASCORBIC ACID
  4. BIKTARVY [Concomitant]
     Active Substance: BICTEGRAVIR SODIUM\EMTRICITABINE\TENOFOVIR ALAFENAMIDE FUMARATE
  5. CHOLECALCIFEROL [Concomitant]
     Active Substance: CHOLECALCIFEROL
  6. FAMOTIDINE [Concomitant]
     Active Substance: FAMOTIDINE
  7. fluticasone-salmeterol [Concomitant]
  8. VITAMINS [Concomitant]
     Active Substance: VITAMINS
  9. NYSTATIN [Concomitant]
     Active Substance: NYSTATIN
  10. PANTOPRAZOLE [Concomitant]
     Active Substance: PANTOPRAZOLE
  11. SULFAMETHOXAZOLE\TRIMETHOPRIM [Concomitant]
     Active Substance: SULFAMETHOXAZOLE\TRIMETHOPRIM

REACTIONS (1)
  - Bradycardia [None]

NARRATIVE: CASE EVENT DATE: 20220825
